FAERS Safety Report 14115739 (Version 1)
Quarter: 2017Q4

REPORT INFORMATION
  Report Type: Spontaneous
  Country: US (occurrence: US)
  Receive Date: 20171023
  Receipt Date: 20171023
  Transmission Date: 20180321
  Serious: No
  Sender: FDA-Public Use
  Company Number: US-ALLERGAN-1734495US

PATIENT
  Sex: Female

DRUGS (2)
  1. LINZESS [Suspect]
     Active Substance: LINACLOTIDE
     Indication: FREQUENT BOWEL MOVEMENTS
  2. LINZESS [Suspect]
     Active Substance: LINACLOTIDE
     Indication: IRRITABLE BOWEL SYNDROME
     Dosage: UNK
     Dates: start: 201707

REACTIONS (8)
  - Drug prescribing error [Unknown]
  - Gastrointestinal motility disorder [Unknown]
  - Muscle spasms [Unknown]
  - Abdominal pain upper [Unknown]
  - Abdominal distension [Unknown]
  - Off label use [Unknown]
  - Drug ineffective [Unknown]
  - Fatigue [Unknown]

NARRATIVE: CASE EVENT DATE: 2017
